FAERS Safety Report 5813435-7 (Version None)
Quarter: 2008Q3

REPORT INFORMATION
  Report Type: 
  Country: None (occurrence: None)
  Receive Date: 20080716
  Receipt Date: 20080716
  Transmission Date: 20090109
  Serious: No
  Sender: FDA-Public Use
  Company Number: None

PATIENT
  Age: 76 Year
  Sex: Male
  Weight: 123.6 kg

DRUGS (2)
  1. CODEINE/GUAIFENESIN [Suspect]
     Indication: COUGH
     Dosage: 10 ML PRN PO
     Route: 048
     Dates: start: 20080423, end: 20080423
  2. DOXYCYCLINE HCL [Suspect]
     Indication: UPPER RESPIRATORY TRACT INFECTION
     Dosage: 100 MG BID PO
     Route: 048
     Dates: start: 20080423, end: 20080423

REACTIONS (5)
  - ANGIOEDEMA [None]
  - OXYGEN SATURATION DECREASED [None]
  - RASH PRURITIC [None]
  - SWOLLEN TONGUE [None]
  - URTICARIA [None]
